FAERS Safety Report 24049456 (Version 1)
Quarter: 2024Q3

REPORT INFORMATION
  Report Type: Report from Study
  Country: US (occurrence: US)
  Receive Date: 20240704
  Receipt Date: 20240704
  Transmission Date: 20241016
  Serious: Yes (Other)
  Sender: ROCHE
  Company Number: US-ROCHE-10000009303

PATIENT

DRUGS (14)
  1. ERLOTINIB [Suspect]
     Active Substance: ERLOTINIB
     Indication: Non-small cell lung cancer
     Route: 065
  2. ATEZOLIZUMAB [Suspect]
     Active Substance: ATEZOLIZUMAB
     Indication: Non-small cell lung cancer
     Route: 065
  3. AFATINIB [Suspect]
     Active Substance: AFATINIB
     Indication: Non-small cell lung cancer
     Route: 065
  4. OSIMERTINIB [Suspect]
     Active Substance: OSIMERTINIB
     Indication: Non-small cell lung cancer
     Route: 065
  5. CETUXIMAB [Suspect]
     Active Substance: CETUXIMAB
     Indication: Non-small cell lung cancer
     Route: 065
  6. DACOMITINIB [Suspect]
     Active Substance: DACOMITINIB
     Indication: Non-small cell lung cancer
     Route: 065
  7. GEFITINIB [Suspect]
     Active Substance: GEFITINIB
     Indication: Non-small cell lung cancer
     Route: 065
  8. POZIOTINIB [Suspect]
     Active Substance: POZIOTINIB
     Indication: Non-small cell lung cancer
     Route: 065
  9. ROCILETINIB [Suspect]
     Active Substance: ROCILETINIB
     Indication: Non-small cell lung cancer
     Route: 065
  10. PELITINIB [Suspect]
     Active Substance: PELITINIB
     Indication: Non-small cell lung cancer
     Route: 065
  11. NECITUMUMAB [Suspect]
     Active Substance: NECITUMUMAB
     Indication: Non-small cell lung cancer
     Route: 065
  12. NERATINIB [Suspect]
     Active Substance: NERATINIB
     Indication: Non-small cell lung cancer
     Route: 065
  13. NIVOLUMAB [Suspect]
     Active Substance: NIVOLUMAB
     Indication: Non-small cell lung cancer
     Route: 065
  14. PEMBROLIZUMAB [Suspect]
     Active Substance: PEMBROLIZUMAB
     Indication: Non-small cell lung cancer
     Route: 065

REACTIONS (6)
  - Dermatitis acneiform [Unknown]
  - Rash maculo-papular [Unknown]
  - Rash pustular [Unknown]
  - Xerosis [Unknown]
  - Pruritus [Unknown]
  - Paronychia [Unknown]
